FAERS Safety Report 14581862 (Version 1)
Quarter: 2018Q1

REPORT INFORMATION
  Report Type: Spontaneous
  Country: RU (occurrence: RU)
  Receive Date: 20180228
  Receipt Date: 20180228
  Transmission Date: 20180509
  Serious: Yes (Other)
  Sender: FDA-Public Use
  Company Number: RU-ASTRAZENECA-2018SE23065

PATIENT
  Age: 60 Year
  Sex: Female
  Weight: 85 kg

DRUGS (8)
  1. TRIMEBUTINE [Concomitant]
     Active Substance: TRIMEBUTINE
  2. TRIPOTASSIUM DICITRATOBISMUTHATE [Concomitant]
  3. PANCREATIN [Concomitant]
     Active Substance: PANCRELIPASE
  4. MANINIL [Concomitant]
     Active Substance: GLYBURIDE
  5. NEXIUM [Concomitant]
     Active Substance: ESOMEPRAZOLE MAGNESIUM
  6. PHOSPHALUGEL [Concomitant]
     Active Substance: ALUMINUM PHOSPHATE
  7. FORXIGA [Suspect]
     Active Substance: DAPAGLIFLOZIN
     Indication: TYPE 2 DIABETES MELLITUS
     Route: 048
     Dates: start: 201702
  8. RABEPRAZOLE [Concomitant]
     Active Substance: RABEPRAZOLE

REACTIONS (1)
  - Oesophageal varices haemorrhage [Recovered/Resolved]

NARRATIVE: CASE EVENT DATE: 20170603
